FAERS Safety Report 14536754 (Version 1)
Quarter: 2018Q1

REPORT INFORMATION
  Report Type: Spontaneous
  Country: US (occurrence: US)
  Receive Date: 20180215
  Receipt Date: 20180215
  Transmission Date: 20180509
  Serious: Yes (Hospitalization)
  Sender: FDA-Public Use
  Company Number: None

PATIENT
  Age: 76 Year
  Sex: Female
  Weight: 78.1 kg

DRUGS (13)
  1. IMDUR [Concomitant]
     Active Substance: ISOSORBIDE MONONITRATE
  2. NORCO [Suspect]
     Active Substance: ACETAMINOPHEN\HYDROCODONE BITARTRATE
  3. MS CONTIN [Suspect]
     Active Substance: MORPHINE SULFATE
     Indication: BACK PAIN
     Dosage: 30MG Q8HRS PRN NIGHTL PO
     Route: 048
  4. ROCALTROL [Concomitant]
     Active Substance: CALCITRIOL
  5. TENORMIN [Concomitant]
     Active Substance: ATENOLOL
  6. WELLBUTRIN SR [Concomitant]
     Active Substance: BUPROPION HYDROCHLORIDE
  7. BUSPAR [Concomitant]
     Active Substance: BUSPIRONE HYDROCHLORIDE
  8. NTG [Concomitant]
     Active Substance: NITROGLYCERIN
  9. NEURONTIN [Concomitant]
     Active Substance: GABAPENTIN
  10. SOMA [Suspect]
     Active Substance: CARISOPRODOL
  11. PHENERGAN [Suspect]
     Active Substance: PROMETHAZINE HYDROCHLORIDE
     Indication: BACK PAIN
     Dosage: 5/325MG Q4HRS PRN PO
     Route: 048
  12. ASA [Concomitant]
     Active Substance: ASPIRIN
  13. CYMBALTA [Concomitant]
     Active Substance: DULOXETINE HYDROCHLORIDE

REACTIONS (3)
  - Somnolence [None]
  - Unresponsive to stimuli [None]
  - Accidental overdose [None]

NARRATIVE: CASE EVENT DATE: 20170629
